FAERS Safety Report 5651259-4 (Version None)
Quarter: 2008Q1

REPORT INFORMATION
  Report Type: 
  Country: None (occurrence: None)
  Receive Date: 20080131
  Receipt Date: 20071026
  Transmission Date: 20080703
  Serious: No
  Sender: FDA-Public Use
  Company Number: US200710007371

PATIENT
  Age: 45 Year
  Sex: Female
  Weight: 70.3 kg

DRUGS (5)
  1. BYETTA [Suspect]
     Indication: TYPE 2 DIABETES MELLITUS
     Dosage: 5 UG, 2/D, SUBCUTANEOUS ; 10 UG, 2/D, SUBCUTANEOUS
     Route: 058
     Dates: start: 20050101, end: 20050101
  2. BYETTA [Suspect]
     Indication: TYPE 2 DIABETES MELLITUS
     Dosage: 5 UG, 2/D, SUBCUTANEOUS ; 10 UG, 2/D, SUBCUTANEOUS
     Route: 058
     Dates: start: 20050101
  3. METFORMIN HCL [Concomitant]
  4. AVANDIA [Concomitant]
  5. LEVOXYL [Concomitant]

REACTIONS (6)
  - FEELING COLD [None]
  - IMPATIENCE [None]
  - LIBIDO INCREASED [None]
  - MENOPAUSAL SYMPTOMS [None]
  - MOOD ALTERED [None]
  - POLYMENORRHOEA [None]
